FAERS Safety Report 8494295-5 (Version None)
Quarter: 2012Q3

REPORT INFORMATION
  Report Type: 
  Country: None (occurrence: None)
  Receive Date: 20120709
  Receipt Date: 20120627
  Transmission Date: 20120928
  Serious: Yes (Other)
  Sender: FDA-Public Use
  Company Number: JP-VERTEX PHARMACEUTICALS INC.-AE-2012-009731

PATIENT
  Age: 51 Year
  Sex: Male

DRUGS (11)
  1. RIBAVIRIN [Concomitant]
     Indication: HEPATITIS C
     Route: 048
     Dates: start: 20120428, end: 20120510
  2. RIBAVIRIN [Concomitant]
     Route: 048
     Dates: start: 20120511, end: 20120531
  3. EPADEL S [Concomitant]
     Route: 048
  4. TELAVIC (TELAPREVIR) [Suspect]
     Indication: HEPATITIS C
     Route: 048
     Dates: start: 20120428, end: 20120503
  5. TELAVIC (TELAPREVIR) [Suspect]
     Dates: start: 20120601
  6. TELAVIC (TELAPREVIR) [Suspect]
     Route: 048
     Dates: start: 20120504, end: 20120531
  7. RIBAVIRIN [Concomitant]
     Route: 048
     Dates: start: 20120601
  8. LIVALO [Concomitant]
     Route: 048
  9. CLARITIN REDITABS [Concomitant]
     Route: 048
  10. PEGINTERFERON ALFA-2B [Concomitant]
     Indication: HEPATITIS C
     Route: 058
     Dates: start: 20120428
  11. FEROTYM [Concomitant]
     Route: 048

REACTIONS (3)
  - RENAL DISORDER [None]
  - ANAEMIA [None]
  - PLATELET COUNT DECREASED [None]
